FAERS Safety Report 19196838 (Version 3)
Quarter: 2023Q1

REPORT INFORMATION
  Report Type: Spontaneous
  Country: US (occurrence: US)
  Receive Date: 20210429
  Receipt Date: 20230103
  Transmission Date: 20230418
  Serious: Yes (Death, Hospitalization, Other)
  Sender: FDA-Public Use
  Company Number: US-PFIZER INC-2021456384

PATIENT
  Age: 68 Year
  Sex: Male

DRUGS (14)
  1. AZITHROMYCIN [Suspect]
     Active Substance: AZITHROMYCIN
     Indication: Pneumonia
     Dosage: 500 MG, DAILY
     Route: 042
  2. VANCOMYCIN HYDROCHLORIDE [Suspect]
     Active Substance: VANCOMYCIN HYDROCHLORIDE
     Indication: Pneumonia
     Dosage: 2 G, VANCOMYCIN FOLLOWED BY LEVEL-BASED DOSING WITH A TARGET TROUGH OF 15 UG/ML FOR 5 DAYS
     Route: 042
  3. CEFEPIME HYDROCHLORIDE [Suspect]
     Active Substance: CEFEPIME HYDROCHLORIDE
     Indication: Pneumonia
     Dosage: 2 G, 2X/DAY FOR 5 DAYS
     Route: 042
  4. ROCURONIUM BROMIDE [Suspect]
     Active Substance: ROCURONIUM BROMIDE
     Indication: Pneumonia
     Dosage: UNK
  5. NOREPINEPHRINE BITARTRATE [Suspect]
     Active Substance: NOREPINEPHRINE BITARTRATE
     Indication: Pneumonia
     Dosage: UNK
  6. LEVOFLOXACIN [Suspect]
     Active Substance: LEVOFLOXACIN
     Indication: Pneumonia
     Dosage: 750 MG, 1 DOSE
     Route: 042
  7. LEVOFLOXACIN [Suspect]
     Active Substance: LEVOFLOXACIN
     Dosage: 500 MG, 2X/DAY FOR A TOTAL OF 10 DAYS
     Route: 042
  8. MEROPENEM [Suspect]
     Active Substance: MEROPENEM
     Indication: Pneumonia
     Dosage: 500 MG, 3X/DAY, FOR A DURATION OF 6 DAYS
  9. CEFTRIAXONE [Suspect]
     Active Substance: CEFTRIAXONE
     Indication: Pneumonia
     Dosage: 2 G, 1X/DAY, CONTINUED FOR 7 DAYS
     Route: 042
  10. PHENYLEPHRINE [Suspect]
     Active Substance: PHENYLEPHRINE HYDROCHLORIDE
     Indication: Pneumonia
     Dosage: UNK
  11. VASOPRESSIN [Suspect]
     Active Substance: VASOPRESSIN
     Indication: Pneumonia
     Dosage: UNK
  12. MIDODRINE [Suspect]
     Active Substance: MIDODRINE
     Indication: Blood pressure measurement
     Dosage: UNK
  13. DEXAMETHASONE [Concomitant]
     Active Substance: DEXAMETHASONE
     Indication: COVID-19
     Dosage: 20 MG, DAILY FOR 5 DAYS
     Route: 042
  14. DEXAMETHASONE [Concomitant]
     Active Substance: DEXAMETHASONE
     Dosage: 10 MG, DAILY FOR AN ADDITIONAL 5 DAYS
     Route: 042

REACTIONS (1)
  - Drug ineffective [Fatal]

NARRATIVE: CASE EVENT DATE: 20200501
